FAERS Safety Report 12985732 (Version 1)
Quarter: 2016Q4

REPORT INFORMATION
  Report Type: Other
  Country: US (occurrence: US)
  Receive Date: 20161130
  Receipt Date: 20161130
  Transmission Date: 20170207
  Serious: Yes (Other)
  Sender: FDA-Public Use
  Company Number: US-SHIRE-US201617463

PATIENT
  Age: 70 Year
  Sex: Female

DRUGS (2)
  1. XIIDRA [Suspect]
     Active Substance: LIFITEGRAST
     Indication: DRY EYE
     Dosage: UNK, 2X/DAY:BID
     Route: 047
     Dates: start: 20161101, end: 20161113
  2. ARTIFICIAL TEARS                   /00222401/ [Concomitant]
     Indication: PRODUCT USED FOR UNKNOWN INDICATION
     Dosage: UNK, UNKNOWN
     Route: 065

REACTIONS (2)
  - Eye haemorrhage [Unknown]
  - Eye irritation [Unknown]

NARRATIVE: CASE EVENT DATE: 20161112
